FAERS Safety Report 5981940-9 (Version None)
Quarter: 2008Q4

REPORT INFORMATION
  Report Type: 
  Country: None (occurrence: None)
  Receive Date: 20081202
  Receipt Date: 20081117
  Transmission Date: 20090506
  Serious: Yes (Hospitalization)
  Sender: FDA-Public Use
  Company Number: KV200800284

PATIENT
  Age: 56 Year
  Sex: Female
  Weight: 81.6 kg

DRUGS (12)
  1. MORPHINE SULFATE(MORPHINE SULFATE) SLOW RELEASE TABLET, 60MG [Suspect]
     Indication: RHEUMATOID ARTHRITIS
     Dosage: 60 MG, BID, ORAL;  200 MG, Q12HRS, ORAL
     Route: 048
     Dates: start: 20080101, end: 20080501
  2. MORPHINE SULFATE(MORPHINE SULFATE) SLOW RELEASE TABLET, 60MG [Suspect]
     Indication: RHEUMATOID ARTHRITIS
     Dosage: 60 MG, BID, ORAL;  200 MG, Q12HRS, ORAL
     Route: 048
     Dates: end: 20080501
  3. NEURONTIN [Concomitant]
  4. POTASSIUM CHLORIDE (POTASSIUM CHLORIDE) , 20 MEQ [Concomitant]
  5. METHOTREXATE (METHOTREXATE) , 2.5 [Concomitant]
  6. LASIX /00032601/ (FUROSEMIDE), 20 MG [Concomitant]
  7. ASPIRIN [Concomitant]
  8. CLONAZEPAM [Concomitant]
  9. REMERON [Concomitant]
  10. FOLIC ACID (FOLIC ACID), 1 MG [Concomitant]
  11. PREDNISONE (PREDNISONE) , 230 MG [Concomitant]
  12. SENNA /00142201/ (SENNA ALEXANDRINA) [Concomitant]

REACTIONS (5)
  - HYPERSOMNIA [None]
  - OVERDOSE [None]
  - PNEUMONIA ASPIRATION [None]
  - PRODUCT QUALITY ISSUE [None]
  - RESPIRATORY DISTRESS [None]
